FAERS Safety Report 15923558 (Version 2)
Quarter: 2019Q1

REPORT INFORMATION
  Report Type: Other
  Country: IT (occurrence: IT)
  Receive Date: 20190206
  Receipt Date: 20190319
  Transmission Date: 20190417
  Serious: Yes (Other)
  Sender: FDA-Public Use
  Company Number: IT-ACCORD-105714

PATIENT
  Age: 77 Year
  Sex: Male

DRUGS (2)
  1. SERTRALINE [Suspect]
     Active Substance: SERTRALINE HYDROCHLORIDE
     Indication: ANXIETY
     Route: 048
     Dates: start: 20170101, end: 20171119
  2. ASCRIPTIN [Concomitant]
     Active Substance: ASPIRIN

REACTIONS (5)
  - Fatigue [Unknown]
  - Decreased appetite [Unknown]
  - Arterial disorder [Unknown]
  - Intracranial aneurysm [Unknown]
  - Respiratory failure [Unknown]

NARRATIVE: CASE EVENT DATE: 20171119
